FAERS Safety Report 25202634 (Version 2)
Quarter: 2025Q2

REPORT INFORMATION
  Report Type: Spontaneous
  Country: US (occurrence: US)
  Receive Date: 20250416
  Receipt Date: 20250425
  Transmission Date: 20250717
  Serious: No
  Sender: ABBVIE
  Company Number: US-ABBVIE-6234074

PATIENT
  Age: 43 Year
  Sex: Female

DRUGS (1)
  1. LILETTA [Suspect]
     Active Substance: LEVONORGESTREL
     Indication: Product used for unknown indication
     Route: 015
     Dates: start: 20250325

REACTIONS (2)
  - Device deployment issue [Unknown]
  - Device expulsion [Unknown]

NARRATIVE: CASE EVENT DATE: 20250325
